FAERS Safety Report 10430389 (Version 2)
Quarter: 2014Q3

REPORT INFORMATION
  Report Type: Spontaneous
  Country: BR (occurrence: BR)
  Receive Date: 20140904
  Receipt Date: 20140904
  Transmission Date: 20150326
  Serious: Yes (Hospitalization, Disabling)
  Sender: FDA-Public Use
  Company Number: BR-ASTRAZENECA-2012SE45504

PATIENT
  Age: 66 Year
  Sex: Female
  Weight: 58 kg

DRUGS (5)
  1. OSTEOTRAT [Concomitant]
     Dosage: 1 TABLET/EVERY 8 DAYS/IN FASTED STATE
     Route: 048
  2. CRESTOR [Suspect]
     Active Substance: ROSUVASTATIN CALCIUM
     Indication: BLOOD CHOLESTEROL INCREASED
     Dosage: ONE FOURTH TABLET DAILY
     Route: 048
     Dates: start: 2010, end: 2013
  3. CRESTOR [Suspect]
     Active Substance: ROSUVASTATIN CALCIUM
     Indication: BLOOD CHOLESTEROL INCREASED
     Route: 048
     Dates: start: 201408
  4. CRESTOR [Suspect]
     Active Substance: ROSUVASTATIN CALCIUM
     Indication: BLOOD CHOLESTEROL INCREASED
     Route: 048
     Dates: start: 2013, end: 201408
  5. CRESTOR [Suspect]
     Active Substance: ROSUVASTATIN CALCIUM
     Indication: BLOOD CHOLESTEROL INCREASED
     Route: 048

REACTIONS (5)
  - Wrist fracture [Not Recovered/Not Resolved]
  - Drug ineffective [Unknown]
  - Off label use [Recovered/Resolved]
  - Blood cholesterol increased [Unknown]
  - Fall [Recovered/Resolved]

NARRATIVE: CASE EVENT DATE: 2010
